FAERS Safety Report 6939529-0 (Version None)
Quarter: 2010Q3

REPORT INFORMATION
  Report Type: 
  Country: None (occurrence: None)
  Receive Date: 20100819
  Receipt Date: 20100804
  Transmission Date: 20110219
  Serious: Yes (Other)
  Sender: FDA-Public Use
  Company Number: IDA-00404

PATIENT
  Age: 4 Year
  Sex: Female

DRUGS (1)
  1. (PROPRANOLOL) [Suspect]
     Indication: TACHYCARDIA
     Dosage: DAILY DOSE: .75 MG / .25 MG; ROUTE OF ADMINISTRATION: INTRAVENOUS / INTRAVENOUS
     Route: 042

REACTIONS (3)
  - BRAIN INJURY [None]
  - EPILEPSY [None]
  - HYPOGLYCAEMIA [None]
